FAERS Safety Report 10017870 (Version 1)
Quarter: 2014Q1

REPORT INFORMATION
  Report Type: Spontaneous
  Country: US (occurrence: US)
  Receive Date: 20140318
  Receipt Date: 20140318
  Transmission Date: 20141002
  Serious: No
  Sender: FDA-Public Use
  Company Number: US-BRISTOL-MYERS SQUIBB COMPANY-18856138

PATIENT
  Age: 43 Year
  Sex: Male
  Weight: 74.83 kg

DRUGS (1)
  1. ERBITUX [Suspect]
     Indication: SQUAMOUS CELL CARCINOMA OF HEAD AND NECK
     Dosage: 7 WEEKS AGO

REACTIONS (6)
  - Acne [Unknown]
  - Oral fungal infection [Unknown]
  - Blister [Unknown]
  - Nail disorder [Unknown]
  - Malaise [Unknown]
  - Drug dose omission [Unknown]
